FAERS Safety Report 8529652-1 (Version None)
Quarter: 2012Q2

REPORT INFORMATION
  Report Type: 
  Country: None (occurrence: None)
  Receive Date: 20120410
  Receipt Date: 20111213
  Transmission Date: 20120825
  Serious: Yes (Hospitalization)
  Sender: FDA-Public Use
  Company Number: 2011-01401

PATIENT
  Age: 34 Year
  Sex: Male
  Weight: 111.1313 kg

DRUGS (5)
  1. CLONAZEPAM [Concomitant]
  2. VIMPAT [Suspect]
     Indication: EPILEPSY
     Dosage: 400 MG, (200 MG, 2 IN 1 D), ORAL
     Route: 048
  3. ZANISAMIDE [Concomitant]
  4. LEVETIRACETAM [Suspect]
     Indication: EPILEPSY
     Dosage: 1000 MG (500 MG, 2 IN 1 D), ORAL
     Route: 048
     Dates: start: 20111201
  5. LAMICTAL [Concomitant]

REACTIONS (1)
  - CONVULSION [None]
